FAERS Safety Report 4424821-4 (Version None)
Quarter: 2004Q3

REPORT INFORMATION
  Report Type: 
  Country: None (occurrence: None)
  Receive Date: 20040809
  Receipt Date: 20040730
  Transmission Date: 20050211
  Serious: Yes (Hospitalization)
  Sender: FDA-Public Use
  Company Number: 2004SE03750

PATIENT
  Age: 81 Year
  Sex: Female
  Weight: 26 kg

DRUGS (6)
  1. BLOPRESS [Suspect]
     Indication: HYPERTENSION
     Dosage: 4 MG QD PO
     Route: 048
     Dates: end: 20040611
  2. MOBIC [Suspect]
     Indication: BACK PAIN
     Dosage: 10 MG DAILY PO
     Route: 048
     Dates: end: 20040611
  3. CEROCRAL [Suspect]
     Indication: DIZZINESS
     Dosage: 30 MG DAILY PO
     Route: 048
     Dates: end: 20040611
  4. MYONAL [Suspect]
     Indication: BACK PAIN
     Dosage: 150 MG DAILY PO
     Route: 048
     Dates: end: 20040611
  5. MERISLON [Suspect]
     Indication: DIZZINESS
     Dosage: 18 MG DAILY PO
     Route: 048
     Dates: end: 20040611
  6. ADALAT [Suspect]
     Indication: HYPERTENSION
     Dosage: 40 MG DAILY PO
     Route: 048
     Dates: end: 20040611

REACTIONS (8)
  - ALANINE AMINOTRANSFERASE INCREASED [None]
  - ASPARTATE AMINOTRANSFERASE INCREASED [None]
  - BLOOD ALKALINE PHOSPHATASE INCREASED [None]
  - BLOOD LACTATE DEHYDROGENASE INCREASED [None]
  - BLOOD POTASSIUM DECREASED [None]
  - GAMMA-GLUTAMYLTRANSFERASE INCREASED [None]
  - LIVER DISORDER [None]
  - MARKEDLY REDUCED DIETARY INTAKE [None]
